FAERS Safety Report 5556892-6 (Version None)
Quarter: 2007Q4

REPORT INFORMATION
  Report Type: 
  Country: None (occurrence: None)
  Receive Date: 20071211
  Receipt Date: 20071130
  Transmission Date: 20080405
  Serious: Yes (Other)
  Sender: FDA-Public Use
  Company Number: GXKR2007GB10308

PATIENT
  Age: 57 Year
  Sex: Male
  Weight: 94 kg

DRUGS (3)
  1. BENDROFLUMETHIAZIDE (NGX)(BENDROFLUMETHIAZIDE) UNKNOWN [Suspect]
     Indication: HYPERTENSION
     Dosage: 2.5 MG, ORAL
     Route: 048
     Dates: start: 20070413, end: 20071001
  2. SIMVASTATIN [Suspect]
     Indication: HYPERLIPIDAEMIA
     Dosage: 40 MG, ORAL
     Route: 048
     Dates: start: 20070413
  3. AMLODIPINE [Concomitant]

REACTIONS (2)
  - DYSPEPSIA [None]
  - GASTRIC ULCER [None]
